FAERS Safety Report 25012532 (Version 1)
Quarter: 2025Q1

REPORT INFORMATION
  Report Type: Spontaneous
  Country: GB (occurrence: GB)
  Receive Date: 20250226
  Receipt Date: 20250226
  Transmission Date: 20250408
  Serious: Yes (Other)
  Sender: SAMSUNG BIOEPIS
  Company Number: None

PATIENT
  Age: 64 Year
  Sex: Female
  Weight: 70 kg

DRUGS (1)
  1. ADALIMUMAB [Suspect]
     Active Substance: ADALIMUMAB
     Indication: Arteritis
     Dosage: 40MG EVERY 2WEEKS;

REACTIONS (5)
  - Fatigue [Not Recovered/Not Resolved]
  - Skin cancer [Unknown]
  - Dry mouth [Unknown]
  - Night sweats [Unknown]
  - Off label use [Unknown]
